FAERS Safety Report 19665025 (Version 2)
Quarter: 2021Q3

REPORT INFORMATION
  Report Type: Report from Study
  Country: US (occurrence: US)
  Receive Date: 20210806
  Receipt Date: 20210815
  Transmission Date: 20211014
  Serious: Yes (Hospitalization, Other)
  Sender: FDA-Public Use
  Company Number: US-ACADIA PHARMACEUTICALS INC.-ACA-2021-PIM-002602

PATIENT
  Age: 79 Year
  Sex: Male

DRUGS (25)
  1. ASPIRIN. [Concomitant]
     Active Substance: ASPIRIN
  2. IMDUR [Concomitant]
     Active Substance: ISOSORBIDE MONONITRATE
  3. TAMSULOSIN [Concomitant]
     Active Substance: TAMSULOSIN
  4. NUPLAZID [Suspect]
     Active Substance: PIMAVANSERIN TARTRATE
     Indication: DELUSION
  5. AMLODIPINE [Concomitant]
     Active Substance: AMLODIPINE BESYLATE
  6. GABAPENTIN. [Concomitant]
     Active Substance: GABAPENTIN
  7. NOURIANZ [Concomitant]
     Active Substance: ISTRADEFYLLINE
  8. METOPROLOL. [Concomitant]
     Active Substance: METOPROLOL
  9. LOSARTAN POTASSIUM. [Concomitant]
     Active Substance: LOSARTAN POTASSIUM
  10. PRALUENT [Concomitant]
     Active Substance: ALIROCUMAB
  11. RANOLAZINE. [Concomitant]
     Active Substance: RANOLAZINE
  12. RYTARY [Concomitant]
     Active Substance: CARBIDOPA\LEVODOPA
  13. WARFARIN [Concomitant]
     Active Substance: WARFARIN
  14. DONEPEZIL. [Concomitant]
     Active Substance: DONEPEZIL
  15. FISH OIL [Concomitant]
     Active Substance: FISH OIL
  16. HYDROCHLOROTH [Concomitant]
     Active Substance: HYDROCHLOROTHIAZIDE
  17. VITAMIN C [Concomitant]
     Active Substance: ASCORBIC ACID
  18. EZETIMIBE. [Concomitant]
     Active Substance: EZETIMIBE
  19. VITAMIN D [COLECALCIFEROL] [Concomitant]
     Active Substance: CHOLECALCIFEROL
  20. NUPLAZID [Suspect]
     Active Substance: PIMAVANSERIN TARTRATE
     Indication: PARKINSON^S DISEASE PSYCHOSIS
     Dosage: 10 MILLIGRAM, QD
     Route: 048
     Dates: start: 20210604
  21. NUPLAZID [Suspect]
     Active Substance: PIMAVANSERIN TARTRATE
     Indication: HALLUCINATION
  22. ISOSORB MONO [Concomitant]
     Active Substance: ISOSORBIDE MONONITRATE
  23. VITAMIN D3 [Concomitant]
     Active Substance: CHOLECALCIFEROL
  24. PANTOPRAZOLE [Concomitant]
     Active Substance: PANTOPRAZOLE
  25. RANEXA [Concomitant]
     Active Substance: RANOLAZINE

REACTIONS (6)
  - Cough [Recovered/Resolved]
  - Hallucination [Not Recovered/Not Resolved]
  - Pneumonia aspiration [Recovered/Resolved]
  - Underdose [Not Recovered/Not Resolved]
  - Cardiac failure congestive [Recovered/Resolved]
  - Therapeutic product effect incomplete [Not Recovered/Not Resolved]

NARRATIVE: CASE EVENT DATE: 20210727
